FAERS Safety Report 7785585-X (Version None)
Quarter: 2011Q3

REPORT INFORMATION
  Report Type: 
  Country: None (occurrence: None)
  Receive Date: 20110929
  Receipt Date: 20110919
  Transmission Date: 20111222
  Serious: Yes (Other)
  Sender: FDA-Public Use
  Company Number: US-BAYER-2011-055313

PATIENT
  Sex: Female
  Weight: 72.562 kg

DRUGS (6)
  1. PHENYLEPHRINE HCL [Concomitant]
     Dosage: 1 TABLET
     Route: 048
     Dates: start: 20090801
  2. DEXCHLORPHENIRAMINE MALEATE [Concomitant]
     Dosage: 1 TABLET
     Route: 048
     Dates: start: 20090801
  3. DROSPIRENONE AND ETHINYL ESTRADIOL [Suspect]
     Indication: PRODUCT USED FOR UNKNOWN INDICATION
     Dosage: UNK
     Dates: start: 20080101, end: 20090101
  4. NEXIUM [Concomitant]
     Dosage: 40 MG/24HR, UNK
     Route: 048
     Dates: start: 20090801
  5. POLYETHYLENE GLYCOL [Concomitant]
     Dosage: 17 G, DAILY
     Route: 048
     Dates: start: 20090801
  6. AMITIZA [Concomitant]
     Dosage: 8 ?G, BID
     Route: 048

REACTIONS (5)
  - CHOLELITHIASIS [None]
  - CHOLECYSTITIS ACUTE [None]
  - PAIN [None]
  - GALLBLADDER DISORDER [None]
  - INJURY [None]
